FAERS Safety Report 9501349 (Version 2)
Quarter: 2013Q3

REPORT INFORMATION
  Report Type: Spontaneous
  Country: GB (occurrence: GB)
  Receive Date: 20130905
  Receipt Date: 20130912
  Transmission Date: 20140515
  Serious: Yes (Other)
  Sender: FDA-Public Use
  Company Number: GB-GLAXOSMITHKLINE-B0918660A

PATIENT
  Sex: Male

DRUGS (1)
  1. NIQUITIN MINI LOZENGES 1.5MG [Suspect]
     Indication: DRUG WITHDRAWAL MAINTENANCE THERAPY
     Route: 065

REACTIONS (2)
  - Intentional drug misuse [Unknown]
  - Drug administration error [Unknown]
